FAERS Safety Report 6644139-9 (Version None)
Quarter: 2010Q1

REPORT INFORMATION
  Report Type: 
  Country: None (occurrence: None)
  Receive Date: 20100322
  Receipt Date: 20100315
  Transmission Date: 20100710
  Serious: Yes (Death, Other)
  Sender: FDA-Public Use
  Company Number: PHEH2009US18948

PATIENT
  Age: 79 Year
  Sex: Female
  Weight: 59 kg

DRUGS (14)
  1. GLEEVEC [Suspect]
     Indication: GASTROINTESTINAL STROMAL TUMOUR
     Dosage: 400 MG, QD
     Route: 048
     Dates: start: 20080509
  2. NAMENDA [Concomitant]
  3. PEPCID [Concomitant]
  4. CARAFATE [Concomitant]
  5. SYNTHROID [Concomitant]
  6. M.V.I. [Concomitant]
  7. REMERON [Concomitant]
  8. LEXAPRO [Concomitant]
  9. MAG-OX [Concomitant]
  10. NIFEREX (POLYSACCHARIDE-IRON COMPLEX) [Concomitant]
  11. ASPIRIN [Concomitant]
  12. MEGACE [Concomitant]
  13. SEROQUEL [Concomitant]
  14. HYDROCODONE BITARTRATE AND ACETAMINOPHEN [Concomitant]

REACTIONS (2)
  - ABDOMINAL OPERATION [None]
  - PROCEDURAL COMPLICATION [None]
